FAERS Safety Report 14856489 (Version 1)
Quarter: 2018Q2

REPORT INFORMATION
  Report Type: Spontaneous
  Country: US (occurrence: US)
  Receive Date: 20180507
  Receipt Date: 20180507
  Transmission Date: 20180711
  Serious: No
  Sender: FDA-Public Use
  Company Number: US-ROCHE-2049077

PATIENT
  Age: 82 Year
  Sex: Male
  Weight: 70.37 kg

DRUGS (1)
  1. ESBRIET [Suspect]
     Active Substance: PIRFENIDONE
     Indication: IDIOPATHIC PULMONARY FIBROSIS
     Dosage: 3 PILLS IN MORNING, 3 AT NOON, 3 IN EVENING
     Route: 048
     Dates: start: 2015

REACTIONS (4)
  - Fatigue [Recovered/Resolved]
  - Anxiety [Recovered/Resolved]
  - Drug administration error [Unknown]
  - Nausea [Recovered/Resolved]

NARRATIVE: CASE EVENT DATE: 201712
